FAERS Safety Report 20183558 (Version 1)
Quarter: 2021Q4

REPORT INFORMATION
  Report Type: Spontaneous
  Country: US (occurrence: US)
  Receive Date: 20211214
  Receipt Date: 20211214
  Transmission Date: 20220304
  Serious: No
  Sender: FDA-Public Use
  Company Number: US-ABBVIE-21K-163-3833781-00

PATIENT
  Sex: Female

DRUGS (2)
  1. IMBRUVICA [Suspect]
     Active Substance: IBRUTINIB
     Indication: Chronic lymphocytic leukaemia
     Route: 048
  2. IMBRUVICA [Suspect]
     Active Substance: IBRUTINIB
     Dosage: DECREASED HER DAILY DOSE DOWN TO ONE QUARTER% OF ORIGINAL DOSE.
     Route: 048

REACTIONS (6)
  - Rash [Unknown]
  - Capillary fragility [Unknown]
  - Contusion [Unknown]
  - Immunodeficiency [Unknown]
  - Haemoglobin decreased [Unknown]
  - White blood cell count decreased [Unknown]
